FAERS Safety Report 4845227-X (Version None)
Quarter: 2005Q4

REPORT INFORMATION
  Report Type: 
  Country: None (occurrence: None)
  Receive Date: 20051129
  Receipt Date: 20051117
  Transmission Date: 20060501
  Serious: Yes (Death)
  Sender: FDA-Public Use
  Company Number: B0401461A

PATIENT
  Age: 39 Year
  Sex: Male

DRUGS (3)
  1. STAVUDINE [Suspect]
     Indication: HIV INFECTION
     Dosage: 40 MG, SEE IMAGE
  2. EPIVIR [Suspect]
     Dosage: 150 MG/ SEE DOSAGE TEXT
  3. NELFINAVIR MESYLATE [Suspect]
     Dosage: 250 MG/ SEE DOSAGE TEXT

REACTIONS (7)
  - ACUTE MYOCARDIAL INFARCTION [None]
  - CORONARY ARTERY OCCLUSION [None]
  - DILATATION VENTRICULAR [None]
  - ELECTROMECHANICAL DISSOCIATION [None]
  - MITRAL VALVE INCOMPETENCE [None]
  - PROCEDURAL COMPLICATION [None]
  - VENTRICULAR FIBRILLATION [None]
